FAERS Safety Report 8125845-6 (Version None)
Quarter: 2012Q1

REPORT INFORMATION
  Report Type: 
  Country: None (occurrence: None)
  Receive Date: 20120209
  Receipt Date: 20120127
  Transmission Date: 20120608
  Serious: Yes (Other)
  Sender: FDA-Public Use
  Company Number: BR-MYLANLABS-2012S1002369

PATIENT
  Age: 15 Month
  Sex: Male

DRUGS (4)
  1. CHLORAL HYDRATE [Concomitant]
     Dosage: (10%) UP TO 2000MG DAILY
     Route: 065
  2. KETAMINE HYDROCHLORIDE [Suspect]
     Indication: SEPTIC SHOCK
     Dosage: HIGH DOSES (200-600 MG/DAILY)
     Route: 041
  3. MIDAZOLAM [Concomitant]
     Dosage: { 200MG DAILY
     Route: 065
  4. FENTANYL CITRATE [Concomitant]
     Dosage: UP TO 400 MICROG DAILY
     Route: 065

REACTIONS (1)
  - PYRAMIDAL TRACT SYNDROME [None]
